FAERS Safety Report 25535466 (Version 1)
Quarter: 2025Q3

REPORT INFORMATION
  Report Type: Spontaneous
  Country: US (occurrence: US)
  Receive Date: 20250709
  Receipt Date: 20250709
  Transmission Date: 20251021
  Serious: Yes (Death, Other)
  Sender: AMGEN
  Company Number: US-AMGEN-USASP2025132662

PATIENT

DRUGS (1)
  1. RITUXIMAB [Suspect]
     Active Substance: RITUXIMAB
     Indication: Myopathy
     Route: 065

REACTIONS (10)
  - Death [Fatal]
  - Thrombosis [Unknown]
  - Cerebrovascular accident [Unknown]
  - Neoplasm malignant [Unknown]
  - Cardiac failure [Unknown]
  - Off label use [Unknown]
  - Cardiovascular disorder [Unknown]
  - Coronary artery disease [Unknown]
  - Arteriosclerosis [Unknown]
  - Blood creatine phosphokinase increased [Unknown]
